FAERS Safety Report 5054152-3 (Version None)
Quarter: 2006Q3

REPORT INFORMATION
  Report Type: 
  Country: None (occurrence: None)
  Receive Date: 20060713
  Receipt Date: 20060711
  Transmission Date: 20061208
  Serious: Yes (Hospitalization)
  Sender: FDA-Public Use
  Company Number: THQ2006A00213

PATIENT
  Age: 83 Year
  Sex: Female

DRUGS (2)
  1. PIOGLITAZONE HCL [Suspect]
     Indication: DIABETES MELLITUS INADEQUATE CONTROL
     Dosage: 8 MG
     Dates: start: 20031216, end: 20040301
  2. CIPRO (CIPROFLOXACIN) [Concomitant]

REACTIONS (3)
  - CORONARY ARTERY DISEASE [None]
  - MYOCARDIAL INFARCTION [None]
  - RENAL CELL CARCINOMA STAGE UNSPECIFIED [None]
